FAERS Safety Report 24198492 (Version 4)
Quarter: 2024Q3

REPORT INFORMATION
  Report Type: Spontaneous
  Country: US (occurrence: US)
  Receive Date: 20240812
  Receipt Date: 20240919
  Transmission Date: 20241017
  Serious: No
  Sender: ROCHE
  Company Number: US-ROCHE-10000049729

PATIENT
  Age: 46 Year
  Sex: Female

DRUGS (1)
  1. XOLAIR [Suspect]
     Active Substance: OMALIZUMAB
     Indication: Mast cell activation syndrome
     Route: 050
     Dates: start: 202404

REACTIONS (7)
  - Underdose [Unknown]
  - Off label use [Unknown]
  - Wrong technique in device usage process [Unknown]
  - Device issue [Unknown]
  - Product complaint [Unknown]
  - Device use error [Unknown]
  - No adverse event [Unknown]

NARRATIVE: CASE EVENT DATE: 20240801
